FAERS Safety Report 5013326-8 (Version None)
Quarter: 2006Q2

REPORT INFORMATION
  Report Type: 
  Country: None (occurrence: None)
  Receive Date: 20060530
  Receipt Date: 20060411
  Transmission Date: 20061013
  Serious: No
  Sender: FDA-Public Use
  Company Number: US-GLAXOSMITHKLINE-A0601401A

PATIENT
  Age: 40 Year
  Sex: Male

DRUGS (2)
  1. WELLBUTRIN XL [Suspect]
     Dosage: 300MG PER DAY
     Route: 048
     Dates: start: 20060301
  2. NO CONCURRENT MEDICATION [Concomitant]

REACTIONS (5)
  - CYST [None]
  - LOCAL SWELLING [None]
  - MUSCLE SPASMS [None]
  - MYALGIA [None]
  - PAIN [None]
